FAERS Safety Report 10394010 (Version 1)
Quarter: 2014Q3

REPORT INFORMATION
  Report Type: Spontaneous
  Country: DE (occurrence: DE)
  Receive Date: 20140819
  Receipt Date: 20140819
  Transmission Date: 20150326
  Serious: Yes (Congenital Anomaly, Other)
  Sender: FDA-Public Use
  Company Number: DE-TEVA-501659GER

PATIENT
  Age: 1 Day
  Sex: Female

DRUGS (2)
  1. METOPROLOL RETARD GEA [Suspect]
     Active Substance: METOPROLOL
     Indication: EXPOSURE DURING PREGNANCY
     Route: 064
  2. FOLIO FORTE [Concomitant]
     Active Substance: FOLIC ACID\VITAMINS
     Route: 064

REACTIONS (5)
  - Foetal exposure during pregnancy [Unknown]
  - Microcephaly [Recovered/Resolved]
  - Maternal drugs affecting foetus [None]
  - Small for dates baby [Recovered/Resolved]
  - Foetal growth restriction [None]

NARRATIVE: CASE EVENT DATE: 20121006
